FAERS Safety Report 21273540 (Version 2)
Quarter: 2022Q3

REPORT INFORMATION
  Report Type: Report from Study
  Country: FR (occurrence: None)
  Receive Date: 20220831
  Receipt Date: 20220913
  Transmission Date: 20221027
  Serious: Yes (Other)
  Sender: FDA-Public Use
  Company Number: FR-Eisai Medical Research-EC-2022-120287

PATIENT
  Age: 57 Year
  Sex: Female

DRUGS (2)
  1. LENVIMA [Suspect]
     Active Substance: LENVATINIB
     Indication: Endometrial cancer
     Dosage: UNKNOWN FREQUENCY AND DOSE
     Route: 048
     Dates: start: 202208, end: 20220823
  2. KEYTRUDA [Concomitant]
     Active Substance: PEMBROLIZUMAB
     Indication: Endometrial cancer
     Dosage: UNKNOWN FREQUENCY AND DOSE
     Route: 042
     Dates: start: 202208

REACTIONS (2)
  - Face oedema [Unknown]
  - Rash [Unknown]

NARRATIVE: CASE EVENT DATE: 20220801
